FAERS Safety Report 15876731 (Version 8)
Quarter: 2019Q2

REPORT INFORMATION
  Report Type: Report from Study
  Country: FR (occurrence: FR)
  Receive Date: 20190127
  Receipt Date: 20190509
  Transmission Date: 20190711
  Serious: Yes (Hospitalization, Other)
  Sender: FDA-Public Use
  Company Number: PHHY2019FR009327

PATIENT
  Age: 71 Year
  Sex: Male
  Weight: 100 kg

DRUGS (13)
  1. ADOPORT [Suspect]
     Active Substance: TACROLIMUS
     Indication: RENAL TRANSPLANT
     Dosage: 3 MG, UNK
     Route: 048
     Dates: start: 20181120, end: 20181120
  2. ADOPORT [Suspect]
     Active Substance: TACROLIMUS
     Dosage: 6 MG, UNK
     Route: 048
     Dates: start: 20181123, end: 20181126
  3. METHYLPREDNISOLONE. [Suspect]
     Active Substance: METHYLPREDNISOLONE
     Indication: ENZYME INDUCTION
     Dosage: 250 MG, UNK
     Route: 065
     Dates: start: 20181120, end: 20181121
  4. ADOPORT [Suspect]
     Active Substance: TACROLIMUS
     Dosage: 4.5 MG, UNK
     Route: 048
     Dates: start: 20181120
  5. ADOPORT [Suspect]
     Active Substance: TACROLIMUS
     Dosage: 6 MG, UNK
     Route: 048
     Dates: start: 20181120, end: 20181120
  6. ADOPORT [Suspect]
     Active Substance: TACROLIMUS
     Dosage: 8 MG, UNK
     Route: 048
     Dates: start: 20181126, end: 20181126
  7. MYFORTIC [Suspect]
     Active Substance: MYCOPHENOLATE SODIUM
     Indication: ENZYME INDUCTION
     Dosage: 720 MG, UNK
     Route: 065
     Dates: start: 20181121, end: 20190131
  8. ADOPORT [Suspect]
     Active Substance: TACROLIMUS
     Dosage: 4 MG, UNK
     Route: 048
     Dates: start: 20181120, end: 20181120
  9. ADOPORT [Suspect]
     Active Substance: TACROLIMUS
     Dosage: 8 MG, UNK
     Route: 048
     Dates: start: 20181120, end: 20181122
  10. ADOPORT [Suspect]
     Active Substance: TACROLIMUS
     Dosage: 4 MG, UNK
     Route: 048
     Dates: start: 20181127, end: 20181130
  11. ADOPORT [Suspect]
     Active Substance: TACROLIMUS
     Dosage: 4.5 MG, UNK
     Route: 048
     Dates: start: 20181211
  12. MYFORTIC [Suspect]
     Active Substance: MYCOPHENOLATE SODIUM
     Indication: PROPHYLAXIS AGAINST TRANSPLANT REJECTION
  13. BACTRIM [Suspect]
     Active Substance: SULFAMETHOXAZOLE\TRIMETHOPRIM
     Indication: ANTIFUNGAL PROPHYLAXIS
     Dosage: 400 MG, UNK
     Route: 065
     Dates: start: 20181221, end: 20190131

REACTIONS (9)
  - Hypertension [Recovering/Resolving]
  - Anaemia [Recovered/Resolved]
  - Epididymitis [Recovered/Resolved]
  - Hyperkalaemia [Recovered/Resolved]
  - Delayed graft function [Recovered/Resolved]
  - Leukopenia [Recovered/Resolved]
  - Overdose [Recovered/Resolved]
  - Diabetes mellitus inadequate control [Recovered/Resolved]
  - Body height decreased [Unknown]

NARRATIVE: CASE EVENT DATE: 20181120
